FAERS Safety Report 5014910-8 (Version None)
Quarter: 2006Q2

REPORT INFORMATION
  Report Type: 
  Country: None (occurrence: None)
  Receive Date: 20060531
  Receipt Date: 20060522
  Transmission Date: 20061013
  Serious: Yes (Life-Threatening)
  Sender: FDA-Public Use
  Company Number: IT-ABBOTT-06P-083-0333842-00

PATIENT
  Sex: Female

DRUGS (3)
  1. DEPAKENE [Suspect]
     Indication: EPILEPSY
     Route: 048
     Dates: start: 20060413, end: 20060423
  2. TOPIRAMATE [Interacting]
     Indication: EPILEPSY
     Route: 048
     Dates: start: 20050101, end: 20060101
  3. PHENOBARBITAL SODIUM 100MG CAP [Concomitant]
     Indication: EPILEPSY
     Route: 048
     Dates: start: 20050101, end: 20060101

REACTIONS (3)
  - COMA URAEMIC [None]
  - DRUG INTERACTION [None]
  - HYPERAMMONAEMIA [None]
